FAERS Safety Report 7207558-8 (Version None)
Quarter: 2011Q1

REPORT INFORMATION
  Report Type: 
  Country: None (occurrence: None)
  Receive Date: 20110103
  Receipt Date: 20101230
  Transmission Date: 20110831
  Serious: Yes (Hospitalization)
  Sender: FDA-Public Use
  Company Number: SE-CEPHALON-2011000011

PATIENT

DRUGS (3)
  1. RITUXIMAB [Suspect]
  2. TREANDA [Suspect]
  3. LENALIDOMIDE [Suspect]

REACTIONS (2)
  - C-REACTIVE PROTEIN INCREASED [None]
  - PANCYTOPENIA [None]
